FAERS Safety Report 12390868 (Version 1)
Quarter: 2016Q2

REPORT INFORMATION
  Report Type: Spontaneous
  Country: US (occurrence: US)
  Receive Date: 20160520
  Receipt Date: 20160520
  Transmission Date: 20160815
  Serious: No
  Sender: FDA-Public Use
  Company Number: US-GLAXOSMITHKLINE-US2016071834

PATIENT

DRUGS (1)
  1. ABREVA [Suspect]
     Active Substance: DOCOSANOL
     Indication: ORAL HERPES
     Dosage: UNK
     Dates: start: 201605

REACTIONS (5)
  - Condition aggravated [Unknown]
  - Lip swelling [Unknown]
  - Pain [Unknown]
  - Oral herpes [Unknown]
  - Lip blister [Unknown]
